FAERS Safety Report 9409526 (Version 1)
Quarter: 2013Q3

REPORT INFORMATION
  Report Type: Spontaneous
  Country: FR (occurrence: FR)
  Receive Date: 20130719
  Receipt Date: 20130719
  Transmission Date: 20140515
  Serious: Yes (Hospitalization, Other)
  Sender: FDA-Public Use
  Company Number: FR-ABBOTT-13X-056-1121017-00

PATIENT
  Age: 69 Year
  Sex: Male
  Weight: 55 kg

DRUGS (12)
  1. ZECLAR [Suspect]
     Indication: MYCOBACTERIUM AVIUM COMPLEX INFECTION
     Route: 048
     Dates: start: 201212
  2. ANSATIPINE [Interacting]
     Indication: MYCOBACTERIUM AVIUM COMPLEX INFECTION
     Route: 048
     Dates: start: 20121129, end: 20130529
  3. ANSATIPINE [Interacting]
     Dates: end: 20130529
  4. TRUVADA [Concomitant]
     Indication: ACQUIRED IMMUNODEFICIENCY SYNDROME
     Route: 048
     Dates: start: 20121107
  5. NORVIR [Concomitant]
     Indication: ACQUIRED IMMUNODEFICIENCY SYNDROME
     Route: 048
     Dates: start: 20121107
  6. PREZISTA [Concomitant]
     Indication: ACQUIRED IMMUNODEFICIENCY SYNDROME
     Route: 048
     Dates: start: 20121107
  7. BACTRIM [Concomitant]
     Indication: INFECTION PROPHYLAXIS
     Route: 048
     Dates: start: 201210
  8. RIMIFON [Concomitant]
     Indication: MYCOBACTERIUM AVIUM COMPLEX INFECTION
     Route: 048
     Dates: start: 20121129
  9. RIMIFON [Concomitant]
  10. PIRILENE [Concomitant]
     Indication: MYCOBACTERIUM AVIUM COMPLEX INFECTION
     Route: 048
     Dates: start: 20121129
  11. ETHAMBUTOL [Concomitant]
     Indication: MYCOBACTERIUM AVIUM COMPLEX INFECTION
     Route: 048
     Dates: start: 20121129
  12. IZILOX [Concomitant]
     Indication: PRODUCT USED FOR UNKNOWN INDICATION

REACTIONS (4)
  - Hypopyon [Unknown]
  - Uveitis [Unknown]
  - Lymphadenopathy [Unknown]
  - High grade B-cell lymphoma Burkitt-like lymphoma [Unknown]
